FAERS Safety Report 4879675-9 (Version None)
Quarter: 2006Q1

REPORT INFORMATION
  Report Type: 
  Country: None (occurrence: None)
  Receive Date: 20060113
  Receipt Date: 20051116
  Transmission Date: 20060701
  Serious: Yes (Hospitalization, Other)
  Sender: FDA-Public Use
  Company Number: FR-BRISTOL-MYERS SQUIBB COMPANY-13188701

PATIENT
  Age: 86 Year
  Sex: Female

DRUGS (7)
  1. VASTEN [Suspect]
     Route: 048
  2. GARDENAL [Suspect]
     Route: 048
  3. DIAMICRON [Concomitant]
     Route: 048
  4. URBANYL [Concomitant]
  5. DIFFU-K [Concomitant]
     Route: 048
  6. ARICEPT [Concomitant]
  7. PLATELET AGGREGATION INHIBITOR [Concomitant]

REACTIONS (7)
  - AGITATION [None]
  - ALANINE AMINOTRANSFERASE INCREASED [None]
  - ANOREXIA [None]
  - ASPARTATE AMINOTRANSFERASE INCREASED [None]
  - HEPATOCELLULAR DAMAGE [None]
  - HYPERBILIRUBINAEMIA [None]
  - VOMITING [None]
